FAERS Safety Report 18897020 (Version 1)
Quarter: 2021Q1

REPORT INFORMATION
  Report Type: Spontaneous
  Country: DE (occurrence: DE)
  Receive Date: 20210216
  Receipt Date: 20210216
  Transmission Date: 20210420
  Serious: No
  Sender: FDA-Public Use
  Company Number: DE-ALKEM LABORATORIES LIMITED-DE-ALKEM-2020-08109

PATIENT
  Sex: Male
  Weight: 79 kg

DRUGS (3)
  1. PREGABALIN. [Suspect]
     Active Substance: PREGABALIN
     Indication: FEAR
     Dosage: 2 DF, QD (TABLET) (EVERY 1 DAY)
     Route: 065
     Dates: start: 201210
  2. STANGYL [Suspect]
     Active Substance: TRIMIPRAMINE MALEATE
     Indication: DEPRESSION
     Dosage: 1 DF, QD (TABLET) (EVERY 1 DAY)
     Route: 065
     Dates: start: 201210
  3. PAROXETIN [Suspect]
     Active Substance: PAROXETINE HYDROCHLORIDE
     Indication: DEPRESSION
     Dosage: 1 DF, QD (TABLET) (EVERY 1 DAY)
     Route: 065
     Dates: start: 201010

REACTIONS (2)
  - Hot flush [Recovering/Resolving]
  - Fatigue [Not Recovered/Not Resolved]

NARRATIVE: CASE EVENT DATE: 20201019
